FAERS Safety Report 16756350 (Version 1)
Quarter: 2019Q4

REPORT INFORMATION
  Report Type: Spontaneous
  Country: US (occurrence: US)
  Receive Date: 20190829
  Receipt Date: 20190829
  Transmission Date: 20200122
  Serious: Yes (Hospitalization)
  Sender: FDA-Public Use
  Company Number: None

PATIENT
  Sex: Female

DRUGS (21)
  1. XELJANZ [Suspect]
     Active Substance: TOFACITINIB CITRATE
     Indication: POLYARTHRITIS
     Route: 048
  2. ESTRADIOL. [Concomitant]
     Active Substance: ESTRADIOL
  3. TOBRADEX [Concomitant]
     Active Substance: DEXAMETHASONE\TOBRAMYCIN
  4. SUMATRIPTAN. [Concomitant]
     Active Substance: SUMATRIPTAN
  5. CLARITIN [Concomitant]
     Active Substance: LORATADINE
  6. FOLIC ACID. [Concomitant]
     Active Substance: FOLIC ACID
  7. MORPHINE [Concomitant]
     Active Substance: MORPHINE
  8. SIMVASTATIN. [Concomitant]
     Active Substance: SIMVASTATIN
  9. ALMOTRIPTAN. [Concomitant]
     Active Substance: ALMOTRIPTAN
  10. CYCLOBENZAPR [Concomitant]
     Active Substance: CYCLOBENZAPRINE
  11. ESOMEPRA MAG [Concomitant]
  12. LOTEMAX [Concomitant]
     Active Substance: LOTEPREDNOL ETABONATE
  13. OXYCODONE [Concomitant]
     Active Substance: OXYCODONE
  14. RAPAFLO [Concomitant]
     Active Substance: SILODOSIN
  15. LYRICA [Concomitant]
     Active Substance: PREGABALIN
  16. ALMODIPINE [Concomitant]
  17. PHENERGAN [Concomitant]
     Active Substance: PROMETHAZINE HYDROCHLORIDE
  18. PREDNISONE. [Concomitant]
     Active Substance: PREDNISONE
  19. SINGULAIR [Concomitant]
     Active Substance: MONTELUKAST SODIUM
  20. VYVANSE [Concomitant]
     Active Substance: LISDEXAMFETAMINE DIMESYLATE
  21. AMITIZA [Concomitant]
     Active Substance: LUBIPROSTONE

REACTIONS (2)
  - Loss of personal independence in daily activities [None]
  - Condition aggravated [None]
